FAERS Safety Report 7249314-0 (Version None)
Quarter: 2011Q1

REPORT INFORMATION
  Report Type: 
  Country: None (occurrence: None)
  Receive Date: 20110128
  Receipt Date: 20101214
  Transmission Date: 20110831
  Serious: Yes (Hospitalization)
  Sender: FDA-Public Use
  Company Number: IT-BAYER-2010-004606

PATIENT
  Sex: Female

DRUGS (8)
  1. LUVION [Concomitant]
  2. LANTUS [Concomitant]
  3. HUMALOG [Concomitant]
  4. ACETYLSALICYLIC ACID SRT [Suspect]
     Indication: ANGIOPATHY
     Dosage: 100 MG, QD
     Route: 048
     Dates: start: 20090101, end: 20101016
  5. ANTRA [Concomitant]
  6. LASIX [Concomitant]
  7. SERETIDE [Concomitant]
  8. SPIRIVA [Concomitant]

REACTIONS (2)
  - INTRAVENTRICULAR HAEMORRHAGE [None]
  - CEREBRAL HAEMORRHAGE [None]
